FAERS Safety Report 25671915 (Version 3)
Quarter: 2025Q3

REPORT INFORMATION
  Report Type: Report from Study
  Country: CH (occurrence: CH)
  Receive Date: 20250812
  Receipt Date: 20250822
  Transmission Date: 20251020
  Serious: Yes (Hospitalization)
  Sender: ABBVIE
  Company Number: CH-ABBVIE-6409492

PATIENT
  Age: 83 Year
  Sex: Male

DRUGS (2)
  1. CARBIDOPA\LEVODOPA [Suspect]
     Active Substance: CARBIDOPA\LEVODOPA
     Indication: Parkinson^s disease
     Route: 050
     Dates: start: 20200127
  2. CARBIDOPA\LEVODOPA [Suspect]
     Active Substance: CARBIDOPA\LEVODOPA

REACTIONS (15)
  - Gait disturbance [Unknown]
  - Suture insertion [Recovered/Resolved]
  - Malaise [Not Recovered/Not Resolved]
  - Craniofacial fracture [Recovered/Resolved]
  - Asthenia [Unknown]
  - Apathy [Unknown]
  - Salivary hypersecretion [Unknown]
  - Micturition urgency [Unknown]
  - Dizziness [Not Recovered/Not Resolved]
  - Mobility decreased [Unknown]
  - Cognitive disorder [Unknown]
  - Incontinence [Unknown]
  - Balance disorder [Not Recovered/Not Resolved]
  - Parkinson^s disease [Not Recovered/Not Resolved]
  - Freezing phenomenon [Unknown]

NARRATIVE: CASE EVENT DATE: 20250101
